FAERS Safety Report 11065687 (Version 2)
Quarter: 2015Q2

REPORT INFORMATION
  Report Type: Spontaneous
  Country: US (occurrence: US)
  Receive Date: 20150425
  Receipt Date: 20150524
  Transmission Date: 20150821
  Serious: No
  Sender: FDA-Public Use
  Company Number: US-JNJFOC-20131014544

PATIENT
  Age: 59 Year
  Sex: Female
  Weight: 92.99 kg

DRUGS (11)
  1. FENTANYL TRANSDERMAL SYSTEM [Suspect]
     Active Substance: FENTANYL
     Indication: PAIN
     Dosage: NDC 0781-7241-55
     Route: 062
     Dates: start: 20131005
  2. HUMIRA [Concomitant]
     Active Substance: ADALIMUMAB
     Indication: SPONDYLOLISTHESIS
     Dosage: 150 MG IN AM; AND 300 MG IN PM
     Route: 058
  3. TOPIRAMATE. [Concomitant]
     Active Substance: TOPIRAMATE
     Indication: PRODUCT USED FOR UNKNOWN INDICATION
     Route: 048
  4. LYRICA [Concomitant]
     Active Substance: PREGABALIN
     Indication: NEURALGIA
     Dosage: 150 MG IN AM; AND 300 MG IN PM
     Route: 048
  5. OXYCODONE [Concomitant]
     Active Substance: OXYCODONE
     Indication: SPONDYLOLISTHESIS
     Dosage: 150 MG IN AM; AND 300 MG IN PM
     Route: 048
  6. PRAMIPEXOLE [Concomitant]
     Active Substance: PRAMIPEXOLE
     Indication: RESTLESS LEGS SYNDROME
     Route: 048
  7. SULFAZINE [Concomitant]
     Active Substance: SULFASALAZINE
     Indication: SPONDYLOLISTHESIS
     Route: 048
  8. FOLIC ACID. [Concomitant]
     Active Substance: FOLIC ACID
     Indication: BLOOD FOLATE DECREASED
     Dosage: 150 MG IN AM; AND 300 MG IN PM
     Route: 048
  9. XANAX [Concomitant]
     Active Substance: ALPRAZOLAM
     Indication: SUICIDE OF RELATIVE
     Dosage: 150 MG IN AM; AND 300 MG IN PM
     Route: 048
  10. LISINOPRIL. [Concomitant]
     Active Substance: LISINOPRIL
     Indication: BLOOD PRESSURE
     Route: 048
  11. CYMBALTA [Concomitant]
     Active Substance: DULOXETINE HYDROCHLORIDE
     Indication: NEURALGIA
     Dosage: 150 MG IN AM; AND 300 MG IN PM
     Route: 048

REACTIONS (1)
  - Drug ineffective [Not Recovered/Not Resolved]

NARRATIVE: CASE EVENT DATE: 201310
